FAERS Safety Report 13889194 (Version 1)
Quarter: 2017Q3

REPORT INFORMATION
  Report Type: Spontaneous
  Country: US (occurrence: US)
  Receive Date: 20170822
  Receipt Date: 20170822
  Transmission Date: 20171127
  Serious: No
  Sender: FDA-Public Use
  Company Number: US-ROCHE-1086724

PATIENT
  Age: 10 Year
  Sex: Female
  Weight: 33 kg

DRUGS (4)
  1. METHOTREXATE. [Concomitant]
     Active Substance: METHOTREXATE
     Indication: STILL^S DISEASE
     Route: 048
  2. NAPROXEN. [Concomitant]
     Active Substance: NAPROXEN
     Indication: STILL^S DISEASE
     Route: 048
  3. ORAPRED [Concomitant]
     Active Substance: PREDNISOLONE SODIUM PHOSPHATE
     Indication: STILL^S DISEASE
     Route: 048
  4. ACTEMRA [Suspect]
     Active Substance: TOCILIZUMAB
     Indication: STILL^S DISEASE
     Dosage: 250-400 MG
     Route: 042
     Dates: start: 20120504, end: 20120706

REACTIONS (6)
  - Flushing [Recovered/Resolved]
  - Urticaria [Recovered/Resolved]
  - Tachycardia [Unknown]
  - Nausea [Unknown]
  - Infusion related reaction [Unknown]
  - Hypertension [Recovered/Resolved]

NARRATIVE: CASE EVENT DATE: 20120619
